FAERS Safety Report 7912377-0 (Version None)
Quarter: 2011Q4

REPORT INFORMATION
  Report Type: 
  Country: None (occurrence: None)
  Receive Date: 20111114
  Receipt Date: 20111101
  Transmission Date: 20120403
  Serious: Yes (Hospitalization)
  Sender: FDA-Public Use
  Company Number: US-BAYER-201031264NA

PATIENT
  Age: 17 Year
  Sex: Female
  Weight: 84.3 kg

DRUGS (6)
  1. NEXIUM [Concomitant]
  2. YAZ [Suspect]
     Indication: CONTRACEPTION
     Dosage: UNK
  3. PHENERGAN [Concomitant]
  4. YASMIN [Suspect]
     Indication: PREMENSTRUAL SYNDROME
     Dosage: UNK
     Route: 048
     Dates: start: 20070601, end: 20080101
  5. DILAUDID [Concomitant]
  6. SODIUM CHLORIDE [Concomitant]

REACTIONS (6)
  - CHOLECYSTITIS [None]
  - CHOLECYSTITIS CHRONIC [None]
  - HYPOKALAEMIA [None]
  - PANCREATITIS [None]
  - ABDOMINAL PAIN [None]
  - CHEST PAIN [None]
